FAERS Safety Report 20537842 (Version 1)
Quarter: 2022Q1

REPORT INFORMATION
  Report Type: Spontaneous
  Country: US (occurrence: US)
  Receive Date: 20220302
  Receipt Date: 20220302
  Transmission Date: 20220423
  Serious: Yes (Hospitalization)
  Sender: FDA-Public Use
  Company Number: US-GW PHARMA-202202USGW00873

PATIENT
  Age: 9 Year
  Sex: Male

DRUGS (1)
  1. EPIDIOLEX [Suspect]
     Active Substance: CANNABIDIOL
     Indication: Seizure
     Dosage: 500 MG, UNK
     Route: 048
     Dates: start: 20211109

REACTIONS (2)
  - Influenza [Unknown]
  - Seizure [Unknown]

NARRATIVE: CASE EVENT DATE: 20220211
